FAERS Safety Report 10018148 (Version 2)
Quarter: 2014Q1

REPORT INFORMATION
  Report Type: Spontaneous
  Country: US (occurrence: US)
  Receive Date: 20140318
  Receipt Date: 20140318
  Transmission Date: 20141002
  Serious: Yes (Hospitalization)
  Sender: FDA-Public Use
  Company Number: US-BAYER-2014-038009

PATIENT
  Age: 30 Year
  Sex: Female
  Weight: 123.36 kg

DRUGS (4)
  1. MIRENA [Suspect]
     Indication: CONTRACEPTION
     Dosage: 20 MCG/24HR, CONT
     Route: 015
     Dates: start: 20120309, end: 201302
  2. VALIUM [Concomitant]
     Indication: ANXIETY
     Dosage: UNK
     Dates: start: 2008
  3. CELEXA [Concomitant]
  4. NEXIUM [Concomitant]

REACTIONS (7)
  - Uterine perforation [None]
  - Pain [None]
  - Depression [None]
  - Anxiety [None]
  - Injury [None]
  - Emotional distress [None]
  - Device issue [None]
